FAERS Safety Report 19032098 (Version 1)
Quarter: 2021Q1

REPORT INFORMATION
  Report Type: Spontaneous
  Country: US (occurrence: US)
  Receive Date: 20210319
  Receipt Date: 20210319
  Transmission Date: 20210420
  Serious: Yes (Other)
  Sender: FDA-Public Use
  Company Number: US-SA-2021SA091822

PATIENT
  Age: 48 Year
  Sex: Female

DRUGS (1)
  1. ZANTAC [Suspect]
     Active Substance: RANITIDINE HYDROCHLORIDE
     Indication: DYSPEPSIA
     Dosage: 75 MG
     Dates: start: 200001, end: 201901

REACTIONS (3)
  - Ovarian cancer stage IV [Recovered/Resolved]
  - Bladder cancer stage IV [Recovered/Resolved]
  - Hepatic cancer stage IV [Recovered/Resolved]

NARRATIVE: CASE EVENT DATE: 20190627
